FAERS Safety Report 16635780 (Version 1)
Quarter: 2019Q3

REPORT INFORMATION
  Report Type: Report from Study
  Country: None (occurrence: BR)
  Receive Date: 20190726
  Receipt Date: 20190726
  Transmission Date: 20191004
  Serious: Yes (Other)
  Sender: FDA-Public Use
  Company Number: BR-ABBVIE-19K-020-2863840-00

PATIENT
  Age: 24 Year
  Sex: Female
  Weight: 52 kg

DRUGS (2)
  1. HUMIRA [Suspect]
     Active Substance: ADALIMUMAB
     Indication: ANKYLOSING SPONDYLITIS
     Route: 058
     Dates: start: 20160502, end: 20190622
  2. DIOSMIN [Concomitant]
     Active Substance: DIOSMIN
     Indication: PROMOTION OF PERIPHERAL CIRCULATION

REACTIONS (4)
  - Pain [Unknown]
  - Haemorrhoids thrombosed [Not Recovered/Not Resolved]
  - Wound [Not Recovered/Not Resolved]
  - Wound haemorrhage [Not Recovered/Not Resolved]

NARRATIVE: CASE EVENT DATE: 20190505
